FAERS Safety Report 16378642 (Version 1)
Quarter: 2019Q2

REPORT INFORMATION
  Report Type: Spontaneous
  Country: US (occurrence: US)
  Receive Date: 20190415
  Receipt Date: 20190415
  Transmission Date: 20190711
  Serious: Yes (Life-Threatening, Hospitalization, Disabling, Other)
  Sender: FDA-Public Use
  Company Number: None

PATIENT
  Age: 47 Year
  Sex: Male
  Weight: 96.75 kg

DRUGS (21)
  1. INDAPAMIDE. [Concomitant]
     Active Substance: INDAPAMIDE
  2. BUPROPION. [Concomitant]
     Active Substance: BUPROPION
  3. TRIAMCINOLONE CREAM [Concomitant]
     Active Substance: TRIAMCINOLONE
  4. NITROGLYCERIN. [Concomitant]
     Active Substance: NITROGLYCERIN
  5. CLINDAMYCIN. [Concomitant]
     Active Substance: CLINDAMYCIN
  6. SOMADERM TRANSDERMAL GEL [Suspect]
     Active Substance: HOMEOPATHICS
     Indication: HORMONE LEVEL ABNORMAL
     Dosage: ?          QUANTITY:1 PUMP;?
     Route: 061
  7. PREDNISONE. [Concomitant]
     Active Substance: PREDNISONE
  8. ESOMEPRAZOLE. [Concomitant]
     Active Substance: ESOMEPRAZOLE MAGNESIUM
  9. ASPIRIN. [Concomitant]
     Active Substance: ASPIRIN
  10. XANAX [Concomitant]
     Active Substance: ALPRAZOLAM
  11. KETOCONAZOLE. [Concomitant]
     Active Substance: KETOCONAZOLE
  12. CARDURA [Concomitant]
     Active Substance: DOXAZOSIN MESYLATE
  13. PROCARDIA XL [Concomitant]
     Active Substance: NIFEDIPINE
  14. POTASSIUM [Concomitant]
     Active Substance: POTASSIUM
  15. CLONIDINE. [Concomitant]
     Active Substance: CLONIDINE
  16. BUMEX [Concomitant]
     Active Substance: BUMETANIDE
  17. ATENOLOL. [Concomitant]
     Active Substance: ATENOLOL
  18. VITAMIN D [Concomitant]
     Active Substance: VITAMIN D NOS
  19. HYDRALAZINE [Concomitant]
     Active Substance: HYDRALAZINE HYDROCHLORIDE
  20. ATORVASTATIN [Concomitant]
     Active Substance: ATORVASTATIN
  21. INHALER [Concomitant]
     Active Substance: UNSPECIFIED INGREDIENT

REACTIONS (2)
  - Renal failure [None]
  - Impaired work ability [None]

NARRATIVE: CASE EVENT DATE: 20181105
